FAERS Safety Report 8844895 (Version 2)
Quarter: 2012Q4

REPORT INFORMATION
  Report Type: 
  Country: JP (occurrence: JP)
  Receive Date: 20121017
  Receipt Date: 20121018
  Transmission Date: 20130627
  Serious: Yes (Other)
  Sender: FDA-Public Use
  Company Number: JP-PFIZER INC-2012251148

PATIENT
  Age: 55 Year
  Sex: Female
  Weight: 54.4 kg

DRUGS (6)
  1. DOXORUBICIN HCL [Suspect]
     Indication: NON-HODGKIN^S LYMPHOMA
     Dosage: UNK
     Dates: start: 200209
  2. CYCLOPHOSPHAMIDE [Suspect]
  3. RITUXIMAB [Suspect]
  4. ONCOVIN [Suspect]
  5. PREDNISOLONE [Suspect]
  6. METHOTREXATE SODIUM [Concomitant]
     Indication: NON-HODGKIN^S LYMPHOMA
     Dosage: UNK
     Dates: start: 200209

REACTIONS (2)
  - Second primary malignancy [Recovering/Resolving]
  - Small cell lung cancer [Recovering/Resolving]
